FAERS Safety Report 25473812 (Version 2)
Quarter: 2025Q3

REPORT INFORMATION
  Report Type: Spontaneous
  Country: CA (occurrence: CA)
  Receive Date: 20250624
  Receipt Date: 20250923
  Transmission Date: 20251020
  Serious: Yes (Death, Life-Threatening, Hospitalization, Disabling, Congenital Anomaly, Other)
  Sender: ANI
  Company Number: CA-ANIPHARMA-2025-CA-001986

PATIENT
  Age: 80 Year
  Sex: Male
  Weight: 69 kg

DRUGS (54)
  1. CANDESARTAN CILEXETIL [Suspect]
     Active Substance: CANDESARTAN CILEXETIL
     Indication: Product used for unknown indication
  2. MAALOX ANTACID [Suspect]
     Active Substance: ALUMINUM HYDROXIDE\DIMETHICONE\MAGNESIUM HYDROXIDE
  3. CALCIUM [Suspect]
     Active Substance: CALCIUM
  4. PREVACID [Suspect]
     Active Substance: LANSOPRAZOLE
  5. DEXILANT [Suspect]
     Active Substance: DEXLANSOPRAZOLE
  6. HYDROCORTISONE [Suspect]
     Active Substance: HYDROCORTISONE
  7. MESALAMINE [Suspect]
     Active Substance: MESALAMINE
  8. CALCIUM ASCORBATE [Suspect]
     Active Substance: CALCIUM ASCORBATE
  9. INFLUENZA VIRUS VACCINE [Suspect]
     Active Substance: INFLUENZA VIRUS VACCINE
  10. PANTOPRAZOLE SODIUM [Suspect]
     Active Substance: PANTOPRAZOLE SODIUM
  11. FOSRENOL [Suspect]
     Active Substance: LANTHANUM CARBONATE
  12. PANTOPRAZOLE [Suspect]
     Active Substance: PANTOPRAZOLE
  13. BUDESONIDE [Suspect]
     Active Substance: BUDESONIDE
  14. BUDESONIDE\FORMOTEROL FUMARATE [Suspect]
     Active Substance: BUDESONIDE\FORMOTEROL FUMARATE
  15. ROSUVASTATIN [Suspect]
     Active Substance: ROSUVASTATIN
  16. CALCIUM CARBONATE\CHOLECALCIFEROL [Suspect]
     Active Substance: CALCIUM CARBONATE\CHOLECALCIFEROL
  17. PARAFFIN [Suspect]
     Active Substance: PARAFFIN
  18. DEXTROSE\SODIUM CHLORIDE [Suspect]
     Active Substance: DEXTROSE\SODIUM CHLORIDE
  19. ACETAMINOPHEN [Suspect]
     Active Substance: ACETAMINOPHEN
  20. ALBUTEROL SULFATE [Suspect]
     Active Substance: ALBUTEROL SULFATE
  21. ALLANTOIN [Suspect]
     Active Substance: ALLANTOIN
  22. LANTHANUM CARBONATE [Suspect]
     Active Substance: LANTHANUM CARBONATE
  23. ALOE VERA LEAF [Suspect]
     Active Substance: ALOE VERA LEAF
  24. AMIODARONE HYDROCHLORIDE [Suspect]
     Active Substance: AMIODARONE HYDROCHLORIDE
  25. AMLODIPINE BESYLATE [Suspect]
     Active Substance: AMLODIPINE BESYLATE
  26. AMMONIUM CHLORIDE [Suspect]
     Active Substance: AMMONIUM CHLORIDE
  27. ARANESP [Suspect]
     Active Substance: DARBEPOETIN ALFA
  28. ASCORBIC ACID [Suspect]
     Active Substance: ASCORBIC ACID
  29. BETA CAROTENE [Suspect]
     Active Substance: BETA CAROTENE
  30. BETAMETHASONE DIPROPIONATE [Concomitant]
     Active Substance: BETAMETHASONE DIPROPIONATE
  31. BIOTIN [Suspect]
     Active Substance: BIOTIN
  32. BISMUTH SUBNITRATE [Suspect]
     Active Substance: BISMUTH SUBNITRATE
  33. DEXLANSOPRAZOLE [Suspect]
     Active Substance: DEXLANSOPRAZOLE
  34. CALCITRIOL [Suspect]
     Active Substance: CALCITRIOL
  35. HERBALS [Suspect]
     Active Substance: HERBALS
  36. SAFFLOWER [Suspect]
     Active Substance: SAFFLOWER
  37. CHLORAMPHENICOL [Suspect]
     Active Substance: CHLORAMPHENICOL
  38. CHLORPHENIRAMINE [Suspect]
     Active Substance: CHLORPHENIRAMINE
  39. CITRIC ACID [Suspect]
     Active Substance: CITRIC ACID MONOHYDRATE
  40. DEXTROSE [Suspect]
     Active Substance: DEXTROSE MONOHYDRATE
  41. DIPROSONE [Suspect]
     Active Substance: BETAMETHASONE DIPROPIONATE
  42. DOBUTAMINE [Suspect]
     Active Substance: DOBUTAMINE HYDROCHLORIDE
  43. DULCOLAX (BISACODYL) [Suspect]
     Active Substance: BISACODYL
  44. ONDANSETRON [Suspect]
     Active Substance: ONDANSETRON
  45. FIASP [Suspect]
     Active Substance: INSULIN ASPART
  46. DISODIUM HYDROGEN CITRATE [Concomitant]
     Active Substance: DISODIUM HYDROGEN CITRATE
  47. RIBOFLAVIN 5^-PHOSPHATE SODIUM ANHYDROUS [Concomitant]
     Active Substance: RIBOFLAVIN 5^-PHOSPHATE SODIUM ANHYDROUS
  48. POTASSIUM CHLORIDE [Concomitant]
     Active Substance: POTASSIUM CHLORIDE
  49. CHOLECALCIFEROL [Concomitant]
     Active Substance: CHOLECALCIFEROL
  50. QUETIAPINE FUMARATE [Suspect]
     Active Substance: QUETIAPINE FUMARATE
  51. CALCIUM CARBONATE [Suspect]
     Active Substance: CALCIUM CARBONATE
  52. LANSOPRAZOLE [Suspect]
     Active Substance: LANSOPRAZOLE
  53. THEOPHYLLINE [Suspect]
     Active Substance: THEOPHYLLINE
  54. DEXLANSOPRAZOLE [Suspect]
     Active Substance: DEXLANSOPRAZOLE

REACTIONS (73)
  - Aspiration [Fatal]
  - Full blood count abnormal [Not Recovered/Not Resolved]
  - Gastrointestinal disorder [Not Recovered/Not Resolved]
  - Headache [Not Recovered/Not Resolved]
  - Hypercholesterolaemia [Fatal]
  - Joint injury [Fatal]
  - Liver disorder [Fatal]
  - Lung disorder [Fatal]
  - Malignant melanoma stage 0 [Fatal]
  - Micturition urgency [Not Recovered/Not Resolved]
  - Pain [Fatal]
  - Asthenia [Fatal]
  - Pyrexia [Fatal]
  - Pleuritic pain [Fatal]
  - Respiratory symptom [Fatal]
  - Transaminases increased [Fatal]
  - Transient ischaemic attack [Not Recovered/Not Resolved]
  - Tremor [Fatal]
  - Upper respiratory tract infection [Fatal]
  - Asthma [Not Recovered/Not Resolved]
  - Activated partial thromboplastin time prolonged [Fatal]
  - Benign prostatic hyperplasia [Fatal]
  - Anaemia [Fatal]
  - Analgesic therapy [Fatal]
  - Antacid therapy [Fatal]
  - Anticoagulant therapy [Fatal]
  - Bacterial infection [Fatal]
  - Blood calcium increased [Fatal]
  - Blood creatinine increased [Fatal]
  - Blood test abnormal [Fatal]
  - Chronic obstructive pulmonary disease [Fatal]
  - Condition aggravated [Fatal]
  - Breath sounds abnormal [Fatal]
  - Diabetes mellitus [Fatal]
  - Drug hypersensitivity [Fatal]
  - Drug ineffective [Fatal]
  - Drug intolerance [Fatal]
  - Drug therapy [Fatal]
  - End stage renal disease [Fatal]
  - General physical health deterioration [Fatal]
  - Gout [Fatal]
  - Hyperlipidaemia [Fatal]
  - Hyperphosphataemia [Fatal]
  - Bronchopulmonary aspergillosis allergic [Fatal]
  - Incorrect route of product administration [Fatal]
  - Intentional product misuse [Fatal]
  - Lower respiratory tract infection [Fatal]
  - Multiple organ dysfunction syndrome [Fatal]
  - Musculoskeletal stiffness [Fatal]
  - Myasthenia gravis [Fatal]
  - Neuralgia [Fatal]
  - Oedema peripheral [Fatal]
  - Off label use [Fatal]
  - Product dose omission issue [Fatal]
  - Cardiovascular disorder [Not Recovered/Not Resolved]
  - Pulmonary embolism [Fatal]
  - Pyrexia [Fatal]
  - Sepsis [Fatal]
  - Sleep disorder [Fatal]
  - Somnolence [Fatal]
  - Stress [Fatal]
  - Swelling [Fatal]
  - Thrombosis [Fatal]
  - Troponin increased [Fatal]
  - Ulcer [Fatal]
  - Congenital hiatus hernia [Not Recovered/Not Resolved]
  - Hypertension [Not Recovered/Not Resolved]
  - Hyponatraemia [Not Recovered/Not Resolved]
  - Hypophosphataemia [Not Recovered/Not Resolved]
  - Product use in unapproved indication [Not Recovered/Not Resolved]
  - Sleep disorder therapy [Not Recovered/Not Resolved]
  - Coronary artery disease [Not Recovered/Not Resolved]
  - Fatigue [Not Recovered/Not Resolved]

NARRATIVE: CASE EVENT DATE: 20200601
